FAERS Safety Report 9737266 (Version 1)
Quarter: 2013Q4

REPORT INFORMATION
  Report Type: Report from Study
  Country: DE (occurrence: DE)
  Receive Date: 20131206
  Receipt Date: 20131206
  Transmission Date: 20140711
  Serious: Yes (Hospitalization)
  Sender: FDA-Public Use
  Company Number: PHHO2013DE015732

PATIENT
  Sex: 0

DRUGS (4)
  1. PREDNISOLONE SANDOZ [Suspect]
     Dosage: 20 MG, QD
     Route: 048
     Dates: start: 20131105
  2. TACROLIMUS [Suspect]
     Indication: LIVER TRANSPLANT
     Dosage: 4 MG, QD
     Route: 048
     Dates: start: 20131105
  3. VALCYTE [Concomitant]
     Dosage: 450 MG, QD
     Route: 048
     Dates: start: 20131111
  4. CIPROBAY                           /01429801/ [Concomitant]
     Dosage: 200 MG, BID
     Route: 042
     Dates: start: 20131104

REACTIONS (1)
  - Wound dehiscence [Recovered/Resolved]
